FAERS Safety Report 5747521-7 (Version None)
Quarter: 2008Q2

REPORT INFORMATION
  Report Type: 
  Country: None (occurrence: None)
  Receive Date: 20080523
  Receipt Date: 20080519
  Transmission Date: 20081010
  Serious: Yes (Hospitalization, Other)
  Sender: FDA-Public Use
  Company Number: BR-ASTRAZENECA-2008UW10300

PATIENT
  Age: 72 Year
  Sex: Male
  Weight: 36 kg

DRUGS (4)
  1. LOSEC I.V. [Suspect]
     Indication: GASTROOESOPHAGEAL REFLUX DISEASE
     Route: 048
     Dates: start: 20040101, end: 20050101
  2. LOSEC I.V. [Suspect]
     Route: 048
     Dates: start: 20050101
  3. HALDOL [Concomitant]
     Indication: DRUG THERAPY
     Route: 048
     Dates: start: 19960101
  4. AKNETON [Concomitant]
     Indication: MUSCLE RELAXANT THERAPY

REACTIONS (9)
  - COUGH [None]
  - DYSPHAGIA [None]
  - DYSPNOEA [None]
  - FALL [None]
  - INFECTIVE TENOSYNOVITIS [None]
  - MUSCLE ATROPHY [None]
  - OESOPHAGEAL HAEMORRHAGE [None]
  - PNEUMONIA [None]
  - UPPER LIMB FRACTURE [None]
